FAERS Safety Report 13673301 (Version 3)
Quarter: 2017Q3

REPORT INFORMATION
  Report Type: Spontaneous
  Country: ES (occurrence: ES)
  Receive Date: 20170621
  Receipt Date: 20170710
  Transmission Date: 20171127
  Serious: Yes (Hospitalization)
  Sender: FDA-Public Use
  Company Number: ES-CONCORDIA PHARMACEUTICALS INC.-GSH201706-003678

PATIENT
  Age: 29 Year
  Sex: Female

DRUGS (2)
  1. HYDROXYCHLOROQUINE [Suspect]
     Active Substance: HYDROXYCHLOROQUINE
     Indication: SUICIDE ATTEMPT
     Dosage: ONCE
     Route: 048
  2. HYDROXYCHLOROQUINE [Suspect]
     Active Substance: HYDROXYCHLOROQUINE
     Indication: CONNECTIVE TISSUE DISORDER
     Route: 048

REACTIONS (14)
  - Pupils unequal [Unknown]
  - Torsade de pointes [Recovered/Resolved]
  - Hypokalaemia [Unknown]
  - Loss of consciousness [Unknown]
  - Ventricular tachycardia [Recovered/Resolved]
  - Fall [Unknown]
  - Mydriasis [Unknown]
  - Blood bicarbonate decreased [Unknown]
  - Blood lactic acid increased [Unknown]
  - Overdose [Unknown]
  - Intentional overdose [Unknown]
  - Hypotension [Unknown]
  - Cardio-respiratory arrest [Unknown]
  - Electrocardiogram QT prolonged [Recovering/Resolving]
